FAERS Safety Report 10010219 (Version 1)
Quarter: 2014Q1

REPORT INFORMATION
  Report Type: Spontaneous
  Country: CN (occurrence: CN)
  Receive Date: 20140313
  Receipt Date: 20140313
  Transmission Date: 20141002
  Serious: Yes (Death, Other)
  Sender: FDA-Public Use
  Company Number: CN-CELGENEUS-035-21880-14024595

PATIENT
  Sex: 0

DRUGS (4)
  1. REVLIMID [Suspect]
     Indication: PLASMA CELL MYELOMA
     Dosage: 25 MILLIGRAM
     Route: 048
  2. MELPHALAN [Concomitant]
     Indication: PLASMA CELL MYELOMA
     Dosage: 6 MILLIGRAM
     Route: 065
  3. DEXAMETHASONE [Concomitant]
     Indication: PLASMA CELL MYELOMA
     Dosage: 20 MILLIGRAM
     Route: 041
  4. ARSENIC TRIOXIDE [Concomitant]
     Indication: PLASMA CELL MYELOMA
     Route: 065

REACTIONS (9)
  - Death [Fatal]
  - Deep vein thrombosis [Unknown]
  - Leukopenia [Unknown]
  - Thrombocytopenia [Unknown]
  - Fatigue [Unknown]
  - Infection [Unknown]
  - No therapeutic response [Unknown]
  - Plasma cell myeloma recurrent [Unknown]
  - Neutropenia [Unknown]
